FAERS Safety Report 6623992-9 (Version None)
Quarter: 2010Q1

REPORT INFORMATION
  Report Type: 
  Country: None (occurrence: None)
  Receive Date: 20100310
  Receipt Date: 20100226
  Transmission Date: 20100710
  Serious: Yes (Life-Threatening, Hospitalization, Other)
  Sender: FDA-Public Use
  Company Number: SE-JNJFOC-20081105298

PATIENT
  Age: 65 Year
  Sex: Female
  Weight: 72 kg

DRUGS (10)
  1. DOXORUBICIN HCL [Suspect]
     Indication: BREAST CANCER
     Route: 042
  2. COZAAR [Concomitant]
     Indication: HYPERTENSION
     Route: 048
  3. PRONAXEN [Concomitant]
     Indication: PAIN
     Route: 048
  4. ALVEDON [Concomitant]
     Route: 065
  5. PRIMPERAN [Concomitant]
     Indication: ANTIEMETIC SUPPORTIVE CARE
     Route: 048
  6. NOVORAPID FLEXPEN [Concomitant]
     Indication: DIABETES MELLITUS
     Dosage: IE/ML
     Route: 058
  7. INSULATARD [Concomitant]
     Indication: DIABETES MELLITUS
     Dosage: 1E/ML
     Route: 058
  8. AMIMOX [Concomitant]
     Indication: PNEUMONIA
     Route: 048
  9. ACETAMINOPHEN [Concomitant]
     Indication: PAIN
     Dosage: 1-2 TABLETS 3X DAILY
     Route: 048
  10. LERGIGAN MITE [Concomitant]
     Indication: ANXIETY
     Route: 048

REACTIONS (1)
  - MYOCARDIAL INFARCTION [None]
